FAERS Safety Report 14422438 (Version 1)
Quarter: 2018Q1

REPORT INFORMATION
  Report Type: Spontaneous
  Country: US (occurrence: US)
  Receive Date: 20180123
  Receipt Date: 20180123
  Transmission Date: 20180509
  Serious: No
  Sender: FDA-Public Use
  Company Number: US-BIOGEN-2017BI00487623

PATIENT
  Age: 45 Year
  Sex: Male

DRUGS (3)
  1. TECFIDERA [Suspect]
     Active Substance: DIMETHYL FUMARATE
     Route: 048
     Dates: start: 20170702
  2. TECFIDERA [Suspect]
     Active Substance: DIMETHYL FUMARATE
     Route: 065
     Dates: start: 20170714, end: 20171218
  3. TECFIDERA [Suspect]
     Active Substance: DIMETHYL FUMARATE
     Indication: MULTIPLE SCLEROSIS
     Route: 048
     Dates: start: 20170626, end: 20170701

REACTIONS (15)
  - Abdominal discomfort [Unknown]
  - Gastric disorder [Recovered/Resolved]
  - Nausea [Recovered/Resolved]
  - Pain [Unknown]
  - Multiple sclerosis [Unknown]
  - Weight decreased [Unknown]
  - Musculoskeletal pain [Unknown]
  - Visual impairment [Unknown]
  - Vision blurred [Unknown]
  - Diarrhoea [Unknown]
  - Muscle spasms [Unknown]
  - Visual field defect [Unknown]
  - Abdominal pain upper [Unknown]
  - Multiple sclerosis relapse [Unknown]
  - Road traffic accident [Recovered/Resolved]

NARRATIVE: CASE EVENT DATE: 20170715
